FAERS Safety Report 11809863 (Version 1)
Quarter: 2015Q4

REPORT INFORMATION
  Report Type: Spontaneous
  Country: US (occurrence: US)
  Receive Date: 20151208
  Receipt Date: 20151208
  Transmission Date: 20160305
  Serious: No
  Sender: FDA-Public Use
  Company Number: US-ASTRAZENECA-2008UW15885

PATIENT
  Age: 59 Year
  Sex: Male
  Weight: 59 kg

DRUGS (5)
  1. PRILOSEC [Suspect]
     Active Substance: OMEPRAZOLE MAGNESIUM
     Indication: ENTERITIS
     Route: 048
     Dates: start: 199811
  2. PRILOSEC [Suspect]
     Active Substance: OMEPRAZOLE MAGNESIUM
     Indication: ULCER
     Route: 048
     Dates: start: 199811
  3. PRILOSEC [Suspect]
     Active Substance: OMEPRAZOLE MAGNESIUM
     Indication: GASTROOESOPHAGEAL REFLUX DISEASE
     Route: 048
     Dates: start: 199811
  4. VASOTEC [Concomitant]
     Active Substance: ENALAPRIL MALEATE
  5. PRILOSEC [Suspect]
     Active Substance: OMEPRAZOLE MAGNESIUM
     Indication: GASTRIC DISORDER
     Route: 048
     Dates: start: 199811

REACTIONS (11)
  - Gastritis erosive [Unknown]
  - Frequent bowel movements [Unknown]
  - Weight decreased [Unknown]
  - Ill-defined disorder [Unknown]
  - Decreased appetite [Unknown]
  - Rectal haemorrhage [Unknown]
  - Bowel movement irregularity [Unknown]
  - Constipation [Unknown]
  - Pancreatitis chronic [Unknown]
  - Malabsorption [Unknown]
  - Nausea [Unknown]
